FAERS Safety Report 6111397-9 (Version None)
Quarter: 2009Q1

REPORT INFORMATION
  Report Type: 
  Country: None (occurrence: None)
  Receive Date: 20090310
  Receipt Date: 20090310
  Transmission Date: 20090719
  Serious: Yes (Life-Threatening)
  Sender: FDA-Public Use
  Company Number: None

PATIENT
  Age: 77 Year
  Sex: Male
  Weight: 76.6579 kg

DRUGS (1)
  1. LEXISCAN [Suspect]
     Dosage: 0.4 MG BOLUS ONCE IV BOLUS
     Route: 040

REACTIONS (4)
  - EXTRASYSTOLES [None]
  - SINUS TACHYCARDIA [None]
  - VENTRICULAR EXTRASYSTOLES [None]
  - VENTRICULAR TACHYCARDIA [None]
